FAERS Safety Report 13958962 (Version 2)
Quarter: 2017Q4

REPORT INFORMATION
  Report Type: Report from Study
  Country: CA (occurrence: CA)
  Receive Date: 20170911
  Receipt Date: 20171030
  Transmission Date: 20180320
  Serious: Yes (Other)
  Sender: FDA-Public Use
  Company Number: PHHY2017CA042090

PATIENT
  Age: 28 Year
  Sex: Male

DRUGS (1)
  1. VOTRIENT [Suspect]
     Active Substance: PAZOPANIB HYDROCHLORIDE
     Indication: SOFT TISSUE SARCOMA
     Dosage: 800 MG, QD
     Route: 048
     Dates: start: 20170311

REACTIONS (12)
  - Lumbar vertebral fracture [Unknown]
  - Thoracic vertebral fracture [Unknown]
  - Cough [Not Recovered/Not Resolved]
  - Bronchiectasis [Unknown]
  - Pulmonary fibrosis [Unknown]
  - Lung consolidation [Unknown]
  - Pleural effusion [Unknown]
  - Pleural thickening [Unknown]
  - Nasopharyngitis [Unknown]
  - Atelectasis [Unknown]
  - Rhinorrhoea [Not Recovered/Not Resolved]
  - Respiratory rate decreased [Unknown]

NARRATIVE: CASE EVENT DATE: 20170311
